FAERS Safety Report 24370777 (Version 1)
Quarter: 2024Q3

REPORT INFORMATION
  Report Type: Spontaneous
  Country: US (occurrence: US)
  Receive Date: 20240927
  Receipt Date: 20240927
  Transmission Date: 20241016
  Serious: No
  Sender: RECKITT BENCKISER
  Company Number: US-INDIVIOR US-INDV-140973-2023

PATIENT
  Sex: Female

DRUGS (2)
  1. PERSERIS [Suspect]
     Active Substance: RISPERIDONE
     Indication: Bipolar disorder
     Dosage: 90 MILLIGRAM, QMO
     Route: 058
     Dates: start: 20230828
  2. PERSERIS [Suspect]
     Active Substance: RISPERIDONE

REACTIONS (5)
  - Off label use [Not Recovered/Not Resolved]
  - Depression [Not Recovered/Not Resolved]
  - Emotional poverty [Not Recovered/Not Resolved]
  - Confusional state [Recovering/Resolving]
  - Musculoskeletal stiffness [Not Recovered/Not Resolved]

NARRATIVE: CASE EVENT DATE: 20230101
